FAERS Safety Report 6146886-4 (Version None)
Quarter: 2009Q2

REPORT INFORMATION
  Report Type: 
  Country: None (occurrence: None)
  Receive Date: 20090407
  Receipt Date: 20090331
  Transmission Date: 20091009
  Serious: Yes (Other)
  Sender: FDA-Public Use
  Company Number: US-AMGEN-QUU340939

PATIENT
  Sex: Male

DRUGS (1)
  1. ENBREL [Suspect]
     Indication: ANKYLOSING SPONDYLITIS
     Route: 058
     Dates: start: 20080602

REACTIONS (6)
  - ASTHENIA [None]
  - BLINDNESS TRANSIENT [None]
  - DIZZINESS [None]
  - EYE PAIN [None]
  - FLUSHING [None]
  - MYALGIA [None]
